FAERS Safety Report 7358641-8 (Version None)
Quarter: 2011Q1

REPORT INFORMATION
  Report Type: 
  Country: None (occurrence: None)
  Receive Date: 20110317
  Receipt Date: 20110304
  Transmission Date: 20110831
  Serious: Yes (Other)
  Sender: FDA-Public Use
  Company Number: PHHY2011TR18207

PATIENT
  Age: 51 Year
  Sex: Male

DRUGS (3)
  1. ETOPOSIDE [Concomitant]
  2. FLUOROURACIL [Suspect]
  3. FOLINIC ACID [Concomitant]

REACTIONS (4)
  - SINUS BRADYCARDIA [None]
  - DIZZINESS [None]
  - PALPITATIONS [None]
  - HEART RATE DECREASED [None]
